FAERS Safety Report 8502026-5 (Version None)
Quarter: 2012Q2

REPORT INFORMATION
  Report Type: 
  Country: None (occurrence: None)
  Receive Date: 20120405
  Receipt Date: 20110425
  Transmission Date: 20120825
  Serious: Yes (Other)
  Sender: FDA-Public Use
  Company Number: PHHY2011US32096

PATIENT
  Age: 70 Year
  Sex: Female

DRUGS (6)
  1. CALCIUM CARBONATE [Concomitant]
  2. RECLAST [Suspect]
     Indication: OSTEOPOROSIS
     Dosage: 5 MG, UNK, INTRAVENOUS
     Route: 042
     Dates: start: 20080204
  3. RECLAST [Suspect]
     Indication: OSTEOPOROSIS
     Dosage: 5 MG, UNK, INTRAVENOUS
     Route: 042
     Dates: start: 20090309
  4. RECLAST [Suspect]
     Indication: OSTEOPOROSIS
     Dosage: 5 MG, UNK, INTRAVENOUS
     Route: 042
     Dates: end: 20090201
  5. IBANDRONATE SODIUM [Concomitant]
  6. ALENDRONATE SODIUM [Concomitant]

REACTIONS (1)
  - OSTEONECROSIS OF JAW [None]
